FAERS Safety Report 21542818 (Version 1)
Quarter: 2022Q4

REPORT INFORMATION
  Report Type: Report from Study
  Country: US (occurrence: US)
  Receive Date: 20221102
  Receipt Date: 20221102
  Transmission Date: 20230113
  Serious: Yes (Other)
  Sender: FDA-Public Use
  Company Number: US-MYLANLABS-2022M1117904

PATIENT

DRUGS (3)
  1. GEODON [Suspect]
     Active Substance: ZIPRASIDONE HYDROCHLORIDE\ZIPRASIDONE MESYLATE
     Indication: Delusional disorder, unspecified type
     Dosage: 80 MILLIGRAM, BID (80 MG TWICE DAILY BY MOUTH)
     Route: 065
  2. ZIPRASIDONE HYDROCHLORIDE [Suspect]
     Active Substance: ZIPRASIDONE HYDROCHLORIDE
     Indication: Delusional disorder, unspecified type
     Dosage: 80 MILLIGRAM, BID (80MG TWICE DAILY BY MOUTH)
     Route: 065
  3. ZIPRASIDONE HYDROCHLORIDE [Suspect]
     Active Substance: ZIPRASIDONE HYDROCHLORIDE
     Dosage: UNK
     Route: 065
     Dates: start: 202209

REACTIONS (4)
  - Haemorrhage [Not Recovered/Not Resolved]
  - Psychotic disorder [Unknown]
  - Thinking abnormal [Unknown]
  - Tremor [Unknown]
